FAERS Safety Report 8157614-5 (Version None)
Quarter: 2012Q1

REPORT INFORMATION
  Report Type: 
  Country: None (occurrence: None)
  Receive Date: 20120222
  Receipt Date: 20120213
  Transmission Date: 20120608
  Serious: Yes (Hospitalization)
  Sender: FDA-Public Use
  Company Number: US-US-EMD SERONO, INC.-7051702

PATIENT
  Sex: Female
  Weight: 87 kg

DRUGS (24)
  1. MS CONTIN [Concomitant]
     Indication: PAIN
     Route: 048
  2. LEXAPRO [Concomitant]
  3. LISINOPRIL [Concomitant]
  4. MORPHINE SULFATE MODIFIED=RELEASE CAPSULE [Concomitant]
     Indication: PAIN
     Route: 048
     Dates: start: 19970101
  5. VALIUM [Concomitant]
  6. POTASSIUM CITRATE [Concomitant]
  7. SPIRIVA [Concomitant]
  8. HEPARIN LOCK-FLUSH [Concomitant]
  9. REMERON [Concomitant]
  10. TOPROL-XL [Concomitant]
  11. BENZONATATE [Concomitant]
  12. BONIVA [Concomitant]
  13. SYNTHROID [Concomitant]
  14. SUMATRIPTAN SUCCINATE [Concomitant]
  15. MORPHINE SULFATE PROLONGED=RELEASE CAPSULE [Concomitant]
     Indication: PAIN
     Route: 048
  16. REBIF [Suspect]
     Indication: MULTIPLE SCLEROSIS
     Route: 058
     Dates: start: 20040917, end: 20100731
  17. CLONAZEPAM [Concomitant]
  18. ADVAIR DISKUS 100/50 [Concomitant]
  19. BENAZEPRIL HYDROCHLORIDE [Concomitant]
  20. NORVASC [Concomitant]
  21. VENTOLIN [Concomitant]
  22. ABILIFY [Concomitant]
  23. CYANOCOBALAMIN [Concomitant]
  24. SINGULAIR [Concomitant]

REACTIONS (3)
  - RENAL IMPAIRMENT [None]
  - ACCIDENTAL OVERDOSE [None]
  - LIVER INJURY [None]
